FAERS Safety Report 5701659-9 (Version None)
Quarter: 2008Q2

REPORT INFORMATION
  Report Type: 
  Country: None (occurrence: None)
  Receive Date: 20080409
  Receipt Date: 20080409
  Transmission Date: 20081010
  Serious: No
  Sender: FDA-Public Use
  Company Number: None

PATIENT
  Age: 82 Year
  Sex: Female
  Weight: 58.9676 kg

DRUGS (1)
  1. RECLAST [Suspect]
     Indication: OSTEOPOROSIS
     Dosage: RECLAST IV ONCE IV DRIP; IV ONE DOSE
     Route: 041
     Dates: start: 20080401, end: 20080401

REACTIONS (6)
  - ARTHRALGIA [None]
  - CHEST PAIN [None]
  - DYSARTHRIA [None]
  - INFLUENZA LIKE ILLNESS [None]
  - MOBILITY DECREASED [None]
  - SCREAMING [None]
